FAERS Safety Report 8828659 (Version 1)
Quarter: 2012Q4

REPORT INFORMATION
  Report Type: 
  Country: FR (occurrence: FR)
  Receive Date: 20121005
  Receipt Date: 20121005
  Transmission Date: 20130627
  Serious: Yes (Death, Hospitalization)
  Sender: FDA-Public Use
  Company Number: FR-BRISTOL-MYERS SQUIBB COMPANY-17005372

PATIENT
  Age: 83 Year
  Sex: Female

DRUGS (7)
  1. COUMADINE [Suspect]
     Dosage: Strength:Coumadine 2 mg, scored tablet
     Route: 048
     Dates: end: 20111124
  2. FLECAINE [Concomitant]
  3. CONTRAMAL [Concomitant]
  4. ZANIDIP [Concomitant]
  5. ESIDREX [Concomitant]
  6. ZOPICLONE [Concomitant]
  7. THIOCOLCHICOSIDE [Concomitant]

REACTIONS (4)
  - Cerebral haemorrhage [Fatal]
  - Blood pressure increased [Fatal]
  - Blood glucose decreased [Fatal]
  - Hypokalaemia [Fatal]
